FAERS Safety Report 7471944-1 (Version None)
Quarter: 2011Q2

REPORT INFORMATION
  Report Type: 
  Country: None (occurrence: None)
  Receive Date: 20110511
  Receipt Date: 20100728
  Transmission Date: 20111010
  Serious: No
  Sender: FDA-Public Use
  Company Number: A0874401A

PATIENT
  Sex: Female

DRUGS (2)
  1. TAXOL [Suspect]
  2. TYKERB [Suspect]
     Dosage: 750MGD PER DAY
     Route: 048
     Dates: start: 20100619, end: 20100719

REACTIONS (1)
  - DIARRHOEA [None]
